FAERS Safety Report 8513378-4 (Version None)
Quarter: 2012Q3

REPORT INFORMATION
  Report Type: 
  Country: None (occurrence: None)
  Receive Date: 20120717
  Receipt Date: 20120711
  Transmission Date: 20120928
  Serious: Yes (Other)
  Sender: FDA-Public Use
  Company Number: US-AMGEN-USASP2012043427

PATIENT
  Age: 68 Year
  Sex: Female

DRUGS (3)
  1. XGEVA [Suspect]
     Indication: BREAST CANCER
  2. TAXOL [Concomitant]
     Indication: BREAST CANCER METASTATIC
  3. XGEVA [Suspect]
     Indication: PROPHYLAXIS
     Dosage: 120 MG, QMO
     Dates: start: 20120101, end: 20120701

REACTIONS (1)
  - OSTEONECROSIS OF JAW [None]
